FAERS Safety Report 25094334 (Version 1)
Quarter: 2025Q1

REPORT INFORMATION
  Report Type: Spontaneous
  Country: FR (occurrence: FR)
  Receive Date: 20250319
  Receipt Date: 20250319
  Transmission Date: 20250408
  Serious: Yes (Hospitalization)
  Sender: EXELIXIS
  Company Number: FR-IPSEN Group, Research and Development-2025-05484

PATIENT
  Age: 78 Year
  Sex: Male

DRUGS (2)
  1. CABOMETYX [Suspect]
     Active Substance: CABOZANTINIB S-MALATE
     Indication: Clear cell renal cell carcinoma
     Dosage: 60 MG, QD, MONOTHERAPIE
     Route: 048
     Dates: start: 20220524, end: 20241216
  2. NIVOLUMAB [Concomitant]
     Active Substance: NIVOLUMAB
     Dates: start: 20220524

REACTIONS (2)
  - Thrombotic microangiopathy [Recovering/Resolving]
  - Acute kidney injury [Recovering/Resolving]

NARRATIVE: CASE EVENT DATE: 20240915
